FAERS Safety Report 8813016 (Version 1)
Quarter: 2012Q4

REPORT INFORMATION
  Report Type: 
  Country: US (occurrence: US)
  Receive Date: 20120927
  Receipt Date: 20120927
  Transmission Date: 20130627
  Serious: No
  Sender: FDA-Public Use
  Company Number: US-AMGEN-USASP2012034262

PATIENT
  Age: 82 Year
  Sex: Female

DRUGS (6)
  1. PROLIA [Suspect]
     Indication: OSTEOPOROSIS POSTMENOPAUSAL
     Dosage: 60 mg, q6mo
     Dates: start: 20120314
  2. PROLIA [Suspect]
     Dates: start: 201203
  3. ANTI-ASTHMATICS [Concomitant]
  4. SERTRALINE [Concomitant]
  5. ORENCIA [Concomitant]
  6. ALBUTEROL SULFATE [Concomitant]

REACTIONS (7)
  - Skin exfoliation [Not Recovered/Not Resolved]
  - Eye burns [Not Recovered/Not Resolved]
  - Dry eye [Not Recovered/Not Resolved]
  - Dry skin [Not Recovered/Not Resolved]
  - Photophobia [Not Recovered/Not Resolved]
  - Rash [Not Recovered/Not Resolved]
  - Pain in extremity [Not Recovered/Not Resolved]
